FAERS Safety Report 4891807-5 (Version None)
Quarter: 2006Q1

REPORT INFORMATION
  Report Type: 
  Country: None (occurrence: None)
  Receive Date: 20060123
  Receipt Date: 20060110
  Transmission Date: 20060701
  Serious: Yes (Hospitalization)
  Sender: FDA-Public Use
  Company Number: JP200601001687

PATIENT
  Age: 50 Year
  Sex: Male

DRUGS (3)
  1. ZYPREXA [Suspect]
     Indication: SCHIZOPHRENIA
     Dosage: 20 MG, DAILY (1/D), ORAL
     Route: 048
     Dates: start: 20050701
  2. RISPERDAL/SWE/(RISPERIDONE) [Concomitant]
  3. SEROQUEL/UNK/(QUETIAPINE FUMARATE) [Concomitant]

REACTIONS (1)
  - HYPOGLYCAEMIC COMA [None]
